FAERS Safety Report 10145180 (Version 1)
Quarter: 2014Q2

REPORT INFORMATION
  Report Type: Spontaneous
  Country: US (occurrence: US)
  Receive Date: 20140501
  Receipt Date: 20140501
  Transmission Date: 20141212
  Serious: No
  Sender: FDA-Public Use
  Company Number: US-BIOGENIDEC-2014BI036625

PATIENT
  Age: 48 Year
  Sex: Female

DRUGS (1)
  1. TECFIDERA [Suspect]
     Indication: MULTIPLE SCLEROSIS
     Dates: start: 20140404

REACTIONS (11)
  - Influenza like illness [Not Recovered/Not Resolved]
  - Feeling abnormal [Not Recovered/Not Resolved]
  - General symptom [Not Recovered/Not Resolved]
  - Mobility decreased [Not Recovered/Not Resolved]
  - Urine output decreased [Not Recovered/Not Resolved]
  - Dehydration [Not Recovered/Not Resolved]
  - Fear [Unknown]
  - Hypophagia [Not Recovered/Not Resolved]
  - Nausea [Unknown]
  - Flushing [Recovered/Resolved]
  - Abdominal pain upper [Not Recovered/Not Resolved]
